FAERS Safety Report 7527436-4 (Version None)
Quarter: 2011Q2

REPORT INFORMATION
  Report Type: 
  Country: None (occurrence: None)
  Receive Date: 20110607
  Receipt Date: 20110601
  Transmission Date: 20111010
  Serious: Yes (Death, Hospitalization)
  Sender: FDA-Public Use
  Company Number: FR-JNJFOC-20110600162

PATIENT
  Sex: Male

DRUGS (9)
  1. DURAGESIC-100 [Suspect]
     Indication: PAIN
     Route: 062
     Dates: start: 20101001
  2. NEXIUM [Concomitant]
     Indication: DEPRESSION
     Route: 048
     Dates: start: 20110201
  3. METHYLPREDNISOLONE [Suspect]
     Indication: PROSTATE CANCER
     Route: 042
     Dates: start: 20110508
  4. TERCIAN [Concomitant]
     Indication: DEPRESSION
     Route: 048
     Dates: start: 20110201
  5. ABIRATERONE [Concomitant]
     Indication: PROSTATE CANCER
     Route: 048
  6. SEVREDOL [Concomitant]
     Indication: PAIN
     Route: 048
     Dates: start: 20101001
  7. METHYLPREDNISOLONE [Suspect]
     Indication: PAIN
     Route: 042
     Dates: start: 20110508
  8. ESCITALOPRAM [Concomitant]
     Indication: DEPRESSION
     Route: 048
     Dates: start: 20110201
  9. ALFUZOSIN HCL [Concomitant]
     Indication: MICTURITION DISORDER
     Route: 048
     Dates: start: 20110301

REACTIONS (4)
  - COMA [None]
  - CEREBRAL HAEMORRHAGE [None]
  - BRAIN OEDEMA [None]
  - FALL [None]
